FAERS Safety Report 5192011-6 (Version None)
Quarter: 2006Q4

REPORT INFORMATION
  Report Type: 
  Country: None (occurrence: None)
  Receive Date: 20061220
  Receipt Date: 20061220
  Transmission Date: 20070319
  Serious: Yes (Hospitalization)
  Sender: FDA-Public Use
  Company Number: None

PATIENT
  Age: 63 Year
  Sex: Female
  Weight: 58.9676 kg

DRUGS (5)
  1. ALPRAZOLAM [Suspect]
     Indication: ANXIETY
     Dosage: 0.25 MG OTO PO
     Route: 048
  2. ELAVIL [Concomitant]
  3. ZOLOFT [Concomitant]
  4. PREDNISONE TAB [Concomitant]
  5. AGGRENOX [Concomitant]

REACTIONS (4)
  - ACUTE RESPIRATORY FAILURE [None]
  - CHRONIC RESPIRATORY FAILURE [None]
  - DRUG HYPERSENSITIVITY [None]
  - SEDATION [None]
